FAERS Safety Report 20702615 (Version 1)
Quarter: 2022Q2

REPORT INFORMATION
  Report Type: Spontaneous
  Country: US (occurrence: US)
  Receive Date: 20220412
  Receipt Date: 20220412
  Transmission Date: 20220720
  Serious: No
  Sender: FDA-Public Use
  Company Number: US-MACROGENICS-2022000066

PATIENT
  Sex: Female

DRUGS (4)
  1. MARGENZA [Suspect]
     Active Substance: MARGETUXIMAB-CMKB
     Indication: Triple negative breast cancer
     Dosage: UNK
     Route: 042
     Dates: start: 202107
  2. MARGENZA [Suspect]
     Active Substance: MARGETUXIMAB-CMKB
     Indication: HER2 positive breast cancer
     Dosage: UNK
     Route: 042
     Dates: start: 202108
  3. MARGENZA [Suspect]
     Active Substance: MARGETUXIMAB-CMKB
     Indication: Breast cancer metastatic
  4. ERIBULIN [Concomitant]
     Active Substance: ERIBULIN
     Indication: Product used for unknown indication
     Dosage: UNK
     Route: 065

REACTIONS (1)
  - Disease progression [Unknown]

NARRATIVE: CASE EVENT DATE: 20210101
